FAERS Safety Report 20736402 (Version 1)
Quarter: 2022Q2

REPORT INFORMATION
  Report Type: Spontaneous
  Country: US (occurrence: US)
  Receive Date: 20220421
  Receipt Date: 20220421
  Transmission Date: 20220721
  Serious: No
  Sender: FDA-Public Use
  Company Number: US-NOVARTISTESTPH-NVSC2022US091870

PATIENT
  Sex: Male
  Weight: 88.45 kg

DRUGS (3)
  1. ORPHENADRINE CITRATE [Suspect]
     Active Substance: ORPHENADRINE CITRATE
     Indication: Abdominal pain upper
     Dosage: UNK, QD
     Route: 048
     Dates: start: 20201006
  2. ORPHENADRINE CITRATE [Suspect]
     Active Substance: ORPHENADRINE CITRATE
     Indication: Dizziness
  3. ORPHENADRINE CITRATE [Suspect]
     Active Substance: ORPHENADRINE CITRATE
     Indication: Dyspnoea

REACTIONS (3)
  - Abdominal pain upper [Unknown]
  - Dizziness [Unknown]
  - Dyspnoea [Unknown]
